FAERS Safety Report 4850469-3 (Version None)
Quarter: 2005Q4

REPORT INFORMATION
  Report Type: 
  Country: None (occurrence: None)
  Receive Date: 20051123
  Receipt Date: 20051026
  Transmission Date: 20060501
  Serious: No
  Sender: FDA-Public Use
  Company Number: 218932

PATIENT
  Sex: Female

DRUGS (1)
  1. RAPTIVA [Suspect]
     Dosage: 125 MG, UNK, UNK
     Route: 065
     Dates: start: 20051023

REACTIONS (3)
  - MIGRAINE [None]
  - MUSCULOSKELETAL STIFFNESS [None]
  - PYREXIA [None]
